FAERS Safety Report 15013803 (Version 2)
Quarter: 2018Q3

REPORT INFORMATION
  Report Type: Spontaneous
  Country: NO (occurrence: NO)
  Receive Date: 20180614
  Receipt Date: 20180813
  Transmission Date: 20181010
  Serious: Yes (Death, Hospitalization, Other)
  Sender: FDA-Public Use
  Company Number: NO-BAUSCH-BL-2018-016735

PATIENT
  Age: 25 Year
  Sex: Male

DRUGS (17)
  1. FOSPHENYTOIN [Suspect]
     Active Substance: FOSPHENYTOIN
     Dosage: INCREASED ON DAY 3 TO REACH THERAPEUTIC BLOOD LEVELS
     Route: 065
  2. LEVETIRACETAM. [Concomitant]
     Active Substance: LEVETIRACETAM
     Indication: STATUS EPILEPTICUS
     Dosage: ICU DAY 1; UNKNOWN
     Route: 065
  3. MIDAZOLAM HYDROCHLORIDE. [Concomitant]
     Active Substance: MIDAZOLAM HYDROCHLORIDE
     Indication: PRODUCT USED FOR UNKNOWN INDICATION
     Route: 065
  4. METRONIDAZOLE. [Suspect]
     Active Substance: METRONIDAZOLE
     Indication: ANTIBIOTIC THERAPY
     Route: 065
  5. PROPOFOL. [Suspect]
     Active Substance: PROPOFOL
     Indication: STATUS EPILEPTICUS
     Dosage: ICU DAY 1: 3.75?5MG/(KG.H)
     Route: 065
  6. PROPOFOL. [Suspect]
     Active Substance: PROPOFOL
     Dosage: ICU DAY 2: 3.75MG/(KG.H)
     Route: 065
  7. PROPOFOL. [Suspect]
     Active Substance: PROPOFOL
     Dosage: 4.4?6.2 MG/(KG.H)
     Route: 042
  8. REMIFENTANIL [Concomitant]
     Active Substance: REMIFENTANIL
     Indication: STATUS EPILEPTICUS
     Route: 065
  9. PROPOFOL. [Suspect]
     Active Substance: PROPOFOL
     Dosage: ICU DAY 3: REDUCED TO 2.3MG/(KG.H)
     Route: 065
  10. PROPOFOL. [Suspect]
     Active Substance: PROPOFOL
     Route: 065
  11. FOSPHENYTOIN [Suspect]
     Active Substance: FOSPHENYTOIN
     Indication: STATUS EPILEPTICUS
     Route: 065
  12. CEFUROXIME. [Concomitant]
     Active Substance: CEFUROXIME
     Indication: ANTIBIOTIC THERAPY
     Route: 065
  13. BENZYLPENICILLIN SODIUM [Concomitant]
     Active Substance: PENICILLIN G SODIUM
     Indication: PNEUMONIA
     Route: 065
  14. DIAZEPAM. [Suspect]
     Active Substance: DIAZEPAM
     Indication: STATUS EPILEPTICUS
     Route: 042
  15. PROPOFOL. [Suspect]
     Active Substance: PROPOFOL
     Dosage: ICU DAY 2: 5MG/(KG.H)
     Route: 065
  16. FOSPHENYTOIN [Suspect]
     Active Substance: FOSPHENYTOIN
     Route: 065
  17. NOREPINEPHRINE. [Concomitant]
     Active Substance: NOREPINEPHRINE
     Indication: PRODUCT USED FOR UNKNOWN INDICATION
     Dosage: 0.03 ? 0.05 MICROGRAM/KG/MIN
     Route: 065

REACTIONS (2)
  - Drug ineffective [Unknown]
  - Propofol infusion syndrome [Fatal]
